FAERS Safety Report 12490243 (Version 6)
Quarter: 2016Q3

REPORT INFORMATION
  Report Type: Spontaneous
  Country: GB (occurrence: GB)
  Receive Date: 20160622
  Receipt Date: 20160921
  Transmission Date: 20161109
  Serious: Yes (Other)
  Sender: FDA-Public Use
  Company Number: GB-PFIZER INC-2016307259

PATIENT
  Age: 49 Year
  Sex: Male
  Weight: 83 kg

DRUGS (13)
  1. CETRABEN EMOLLIENT CREAM [Concomitant]
     Indication: DRY SKIN
     Dosage: AS NEEDED (APPLY AS OFTEN AS NEEDED TO DRY OR ITCHY SKIN)
     Route: 065
     Dates: start: 20160428, end: 20160429
  2. FOLIC ACID. [Concomitant]
     Active Substance: FOLIC ACID
     Dosage: 5 MG, DAILY (WHILST ON METHOTREXATE)
     Dates: start: 20150521
  3. CETRABEN EMOLLIENT CREAM [Concomitant]
     Indication: PRURITUS
  4. MELOXICAM. [Concomitant]
     Active Substance: MELOXICAM
     Dosage: 7.5 MG, 1X/DAY (WITH FOOD)
     Dates: start: 20150521
  5. MOMETASONE [Concomitant]
     Active Substance: MOMETASONE
     Dosage: 1 DF, 1X/DAY (APPLY TO BADLY AFFECTED AREAS DAILY)
     Dates: start: 20160517
  6. ZAPAIN [Concomitant]
     Active Substance: ACETAMINOPHEN\CODEINE PHOSPHATE
     Dosage: 2 DF, AS NEEDED (FOUR TO SIX HOURLY WHEN REQUIRED)
     Dates: start: 20160428, end: 20160429
  7. CANDESARTAN CILEXETIL. [Interacting]
     Active Substance: CANDESARTAN CILEXETIL
     Dosage: 8 MG, UNK
     Route: 048
     Dates: start: 20160301, end: 20160327
  8. AMLODIPINE [Concomitant]
     Active Substance: AMLODIPINE BESYLATE
     Dosage: 10 MG, 1X/DAY
     Dates: start: 20160107
  9. LANSOPRAZOLE. [Concomitant]
     Active Substance: LANSOPRAZOLE
     Dosage: 30 MG, 1X/DAY
     Dates: start: 20150708
  10. SULFASALAZINE. [Concomitant]
     Active Substance: SULFASALAZINE
     Dosage: 500 MG, 2X/DAY
     Dates: start: 20150521
  11. PREDNISOLONE. [Concomitant]
     Active Substance: PREDNISOLONE
     Dosage: THREE TIMES DAILY FOR TWO WEEKS THEN REDUCED BY 2.5 MG PER FORTHNIGHT
     Dates: start: 20160608, end: 20160609
  12. METHOTREXATE SODIUM. [Suspect]
     Active Substance: METHOTREXATE SODIUM
     Indication: RHEUMATOID ARTHRITIS
     Dosage: 17.5 MG, WEEKLY (INCREASE AS DIRECTED TO SEVEN TO BE TAKEN ONCE)
     Dates: start: 20150521, end: 20160414
  13. CANDESARTAN CILEXETIL. [Interacting]
     Active Substance: CANDESARTAN CILEXETIL
     Dosage: 16 MG, UNK
     Route: 048
     Dates: start: 20160328, end: 201604

REACTIONS (3)
  - Drug interaction [Unknown]
  - Alanine aminotransferase increased [Recovered/Resolved]
  - Hepatotoxicity [Recovered/Resolved]

NARRATIVE: CASE EVENT DATE: 2016
